FAERS Safety Report 14375237 (Version 2)
Quarter: 2018Q1

REPORT INFORMATION
  Report Type: Spontaneous
  Country: US (occurrence: US)
  Receive Date: 20180111
  Receipt Date: 20180117
  Transmission Date: 20180509
  Serious: No
  Sender: FDA-Public Use
  Company Number: US-PFIZER INC-2018005646

PATIENT
  Age: 65 Year
  Sex: Female

DRUGS (1)
  1. SUTENT [Suspect]
     Active Substance: SUNITINIB MALATE
     Indication: METASTATIC RENAL CELL CARCINOMA
     Dosage: 50 MG, CYCLIC, (2 WEEKS ON/ 1 WEEK OFF)
     Dates: start: 20171220

REACTIONS (5)
  - Malaise [Unknown]
  - Musculoskeletal pain [Unknown]
  - Fatigue [Unknown]
  - Insomnia [Unknown]
  - Bedridden [Unknown]
